FAERS Safety Report 8905441 (Version 1)
Quarter: 2012Q4

REPORT INFORMATION
  Report Type: Report from Study
  Country: CA (occurrence: CA)
  Receive Date: 20121112
  Receipt Date: 20121112
  Transmission Date: 20130627
  Serious: Yes (Hospitalization)
  Sender: FDA-Public Use
  Company Number: CA-UCBSA-070658

PATIENT
  Age: 49 Year
  Sex: Female
  Weight: 66 kg

DRUGS (6)
  1. CIMZIA [Suspect]
     Indication: RHEUMATOID ARTHRITIS
     Route: 058
     Dates: start: 20100813, end: 2012
  2. CIMZIA [Suspect]
     Indication: RHEUMATOID ARTHRITIS
     Dosage: Q2 WX3
     Route: 058
     Dates: start: 20100703, end: 20100731
  3. MTX [Concomitant]
     Indication: RHEUMATOID ARTHRITIS
     Route: 058
     Dates: start: 200504
  4. FOSAMAX [Concomitant]
     Indication: OSTEOPENIA
     Route: 048
  5. NOVOTYPTIN [Concomitant]
     Indication: SLEEP DISORDER
     Route: 048
  6. IMOVANE [Concomitant]
     Indication: PAIN
     Route: 048

REACTIONS (1)
  - Appendicitis [Recovered/Resolved]
